FAERS Safety Report 4987901-0 (Version None)
Quarter: 2006Q2

REPORT INFORMATION
  Report Type: 
  Country: None (occurrence: None)
  Receive Date: 20060426
  Receipt Date: 20060417
  Transmission Date: 20061013
  Serious: Yes (Life-Threatening)
  Sender: FDA-Public Use
  Company Number: 2006RL000105

PATIENT
  Age: 45 Year
  Sex: Female

DRUGS (2)
  1. OMACOR [Suspect]
     Indication: DRUG USE FOR UNKNOWN INDICATION
     Dosage: 1000 MG; QD; PO
     Route: 048
     Dates: start: 20060303, end: 20060317
  2. ACYCLOVIR [Suspect]
     Indication: HERPES SIMPLEX
     Dosage: 400 MG; QD; PO
     Route: 048

REACTIONS (6)
  - ANXIETY [None]
  - DRUG INTERACTION [None]
  - DYSPNOEA [None]
  - FEELING HOT [None]
  - HEART RATE INCREASED [None]
  - HYPERSENSITIVITY [None]
